FAERS Safety Report 7967688-X (Version None)
Quarter: 2011Q4

REPORT INFORMATION
  Report Type: 
  Country: None (occurrence: None)
  Receive Date: 20111209
  Receipt Date: 20111206
  Transmission Date: 20120403
  Serious: Yes (Other)
  Sender: FDA-Public Use
  Company Number: US-PFIZER INC-2011298164

PATIENT
  Sex: Male
  Weight: 72.562 kg

DRUGS (1)
  1. XALATAN [Suspect]
     Indication: INTRAOCULAR PRESSURE TEST
     Dosage: 1 GTT, 1X/DAY IN EACH EYE
     Route: 047
     Dates: start: 20030101

REACTIONS (2)
  - HYPERTENSION [None]
  - BLOOD CHOLESTEROL INCREASED [None]
